FAERS Safety Report 23251206 (Version 1)
Quarter: 2023Q4

REPORT INFORMATION
  Report Type: Spontaneous
  Country: US (occurrence: US)
  Receive Date: 20231201
  Receipt Date: 20231201
  Transmission Date: 20240110
  Serious: Yes (Other)
  Sender: FDA-Public Use
  Company Number: US-MYLANLABS-2023M1126849

PATIENT
  Age: 69 Year
  Sex: Male

DRUGS (1)
  1. FINASTERIDE [Suspect]
     Active Substance: FINASTERIDE
     Indication: Hyperglycaemia
     Dosage: UNK
     Route: 065
     Dates: start: 2018

REACTIONS (3)
  - Hyperglycaemia [Unknown]
  - Condition aggravated [Unknown]
  - Off label use [Unknown]
